FAERS Safety Report 8833673 (Version 1)
Quarter: 2012Q4

REPORT INFORMATION
  Report Type: Report from Study
  Country: UG (occurrence: UG)
  Receive Date: 20121010
  Receipt Date: 20121010
  Transmission Date: 20130627
  Serious: Yes (Life-Threatening)
  Sender: FDA-Public Use
  Company Number: UG-ABBOTT-12P-165-0992035-00

PATIENT
  Age: 22 Year
  Sex: Female

DRUGS (7)
  1. ALUVIA [Suspect]
     Indication: HIV INFECTION
     Dosage: 400mg/100mg twice daily
     Route: 048
     Dates: start: 20120613
  2. AZT [Concomitant]
     Indication: HIV INFECTION
     Dates: start: 20120613, end: 20120906
  3. 3TC [Concomitant]
     Indication: HIV INFECTION
     Dates: start: 20120613
  4. SEPTRIN [Concomitant]
     Indication: PRODUCT USED FOR UNKNOWN INDICATION
     Dates: start: 20120613
  5. AMOXICILLIN [Concomitant]
     Indication: URINARY TRACT INFECTION
     Dates: start: 20120809
  6. AUGMENTIN [Concomitant]
     Indication: URINARY TRACT INFECTION
     Dates: start: 20120823
  7. PARACETAMOL [Concomitant]
     Indication: URINARY TRACT INFECTION
     Dates: start: 20120823

REACTIONS (1)
  - Anaemia [Unknown]
